APPROVED DRUG PRODUCT: DESONIDE
Active Ingredient: DESONIDE
Strength: 0.05%
Dosage Form/Route: CREAM;TOPICAL
Application: A210198 | Product #001 | TE Code: AB
Applicant: CADILA HEALTHCARE LTD
Approved: Nov 20, 2019 | RLD: No | RS: Yes | Type: RX